FAERS Safety Report 4577631-1 (Version None)
Quarter: 2005Q1

REPORT INFORMATION
  Report Type: 
  Country: None (occurrence: None)
  Receive Date: 20050208
  Receipt Date: 20050125
  Transmission Date: 20050727
  Serious: Yes (Hospitalization)
  Sender: FDA-Public Use
  Company Number: L05-ESP-00345-01

PATIENT
  Age: 54 Year
  Sex: Male

DRUGS (2)
  1. CARBAMAZEPINE [Suspect]
     Indication: EPILEPSY
     Dosage: 200 MG TID
  2. CARBAMAZEPINE [Suspect]
     Indication: EPILEPSY

REACTIONS (2)
  - COLITIS [None]
  - DIARRHOEA [None]
